FAERS Safety Report 11687565 (Version 3)
Quarter: 2016Q2

REPORT INFORMATION
  Report Type: Spontaneous
  Country: FR (occurrence: FR)
  Receive Date: 20151030
  Receipt Date: 20160531
  Transmission Date: 20160815
  Serious: Yes (Death)
  Sender: FDA-Public Use
  Company Number: FR-BAYER-2015-450720

PATIENT
  Age: 41 Year
  Sex: Female

DRUGS (7)
  1. LYRICA [Concomitant]
     Active Substance: PREGABALIN
     Indication: PROCTALGIA
     Dosage: 25 MG, QID
     Route: 048
     Dates: start: 20150701, end: 20150821
  2. OXYNORM [Concomitant]
     Active Substance: OXYCODONE HYDROCHLORIDE
     Indication: PROCTALGIA
     Dosage: 80 MG, QD
     Route: 048
     Dates: start: 20150701, end: 20150821
  3. LASILIX [Concomitant]
     Active Substance: FUROSEMIDE
     Dosage: 20 MG, QD
     Route: 048
  4. OXYCONTIN [Concomitant]
     Active Substance: OXYCODONE HYDROCHLORIDE
     Indication: PROCTALGIA
     Dosage: 160 MG, QD
     Route: 048
     Dates: start: 20150701, end: 20150821
  5. STIVARGA [Suspect]
     Active Substance: REGORAFENIB
     Indication: COLORECTAL CANCER
     Dosage: 2 DF, BID
     Route: 048
     Dates: start: 20150721, end: 20150821
  6. ALPRAZOLAM. [Concomitant]
     Active Substance: ALPRAZOLAM
     Indication: ANXIETY
     Dosage: 0.750 MG, QD
     Dates: start: 20150701, end: 20150821
  7. ZOPHREN [Concomitant]
     Active Substance: ONDANSETRON
     Dosage: 16 MG, UNK

REACTIONS (11)
  - Blood bilirubin increased [Fatal]
  - Jaundice [Fatal]
  - Anaemia [Fatal]
  - Weight decreased [Fatal]
  - Confusional state [Fatal]
  - Hepatic failure [Fatal]
  - Fatigue [Fatal]
  - Coma [Fatal]
  - Decreased appetite [Fatal]
  - Transaminases increased [Fatal]
  - Oedema peripheral [Fatal]

NARRATIVE: CASE EVENT DATE: 20150818
